FAERS Safety Report 13004727 (Version 1)
Quarter: 2016Q4

REPORT INFORMATION
  Report Type: Spontaneous
  Country: US (occurrence: US)
  Receive Date: 20161207
  Receipt Date: 20161207
  Transmission Date: 20170207
  Serious: Yes (Death, Other)
  Sender: FDA-Public Use
  Company Number: US-CLINIGEN GROUP PLC/ CLINIGEN HEALTHCARE LTD-E2B_00004783

PATIENT
  Age: 41 Year
  Sex: Male

DRUGS (3)
  1. POTASSIUM [Concomitant]
     Active Substance: POTASSIUM
     Indication: HYPOKALAEMIA
     Dosage: DOSE: 8 MEQ TOTAL DAILY DOSE: 16 MEQ
     Route: 048
     Dates: start: 19940503, end: 19940508
  2. FOSCAVIR [Suspect]
     Active Substance: FOSCARNET SODIUM
     Indication: CYTOMEGALOVIRUS CHORIORETINITIS
     Dosage: DOSE: 6  TOTAL DAILY DOSE: 6
     Route: 042
  3. MAGNESIUM SULFATE. [Concomitant]
     Active Substance: MAGNESIUM SULFATE
     Indication: HYPOMAGNESAEMIA
     Dosage: DOSE: 400 MG TOTAL DAILY DOSE: 1200 MG
     Route: 048
     Dates: start: 19940228

REACTIONS (7)
  - Confusional state [Fatal]
  - Hypokalaemia [Unknown]
  - Weight decreased [Fatal]
  - Asthenia [Fatal]
  - Pain [Unknown]
  - Paraesthesia [Unknown]
  - Hypomagnesaemia [Unknown]

NARRATIVE: CASE EVENT DATE: 19940224
